FAERS Safety Report 4426793-5 (Version None)
Quarter: 2004Q3

REPORT INFORMATION
  Report Type: 
  Country: None (occurrence: None)
  Receive Date: 20040816
  Receipt Date: 20040726
  Transmission Date: 20050211
  Serious: Yes (Death)
  Sender: FDA-Public Use
  Company Number: DE-JNJFOC-20040707169

PATIENT
  Sex: Male

DRUGS (52)
  1. LEVOFLOXACIN [Suspect]
     Route: 042
     Dates: start: 20031123, end: 20031124
  2. LEVOFLOXACIN [Suspect]
     Indication: PNEUMONIA
     Dates: start: 20031125, end: 20031126
  3. ALBUTEROL [Concomitant]
  4. ATROVENT [Concomitant]
  5. ATROVENT [Concomitant]
  6. ATROVENT [Concomitant]
  7. XOPENEX [Concomitant]
  8. XOPENEX [Concomitant]
  9. XOPENEX [Concomitant]
  10. XOPENEX [Concomitant]
  11. ATIVAN [Concomitant]
  12. ATIVAN [Concomitant]
  13. ATIVAN [Concomitant]
  14. PEPCID [Concomitant]
  15. XANAX [Concomitant]
  16. XANAX [Concomitant]
  17. CATAPRES [Concomitant]
     Route: 061
  18. NITRO-DUR [Concomitant]
     Route: 061
  19. MAALOX PLUS [Concomitant]
  20. MAALOX PLUS [Concomitant]
  21. MAALOX PLUS [Concomitant]
  22. CARDIZEM [Concomitant]
  23. CARDIZEM [Concomitant]
  24. CARDIZEM [Concomitant]
  25. SLOW-K [Concomitant]
  26. PROTONIX [Concomitant]
  27. CROMOLYN SODIUM [Concomitant]
  28. DULCOLAX [Concomitant]
  29. DISALCID [Concomitant]
  30. DISALCID [Concomitant]
  31. AMBIEN [Concomitant]
  32. MYLANTA [Concomitant]
  33. MYLANTA [Concomitant]
  34. MYLANTA [Concomitant]
  35. GAS X [Concomitant]
  36. NORCO [Concomitant]
  37. NORCO [Concomitant]
  38. NORCO [Concomitant]
  39. MORPHINE [Concomitant]
  40. MORPHINE [Concomitant]
  41. MORPHINE [Concomitant]
  42. MORPHINE [Concomitant]
  43. KCL TAB [Concomitant]
  44. KCL TAB [Concomitant]
  45. KCL TAB [Concomitant]
  46. SOLU-MEDROL [Concomitant]
  47. LASIX [Concomitant]
  48. ZOFRAN [Concomitant]
  49. SEREVENT [Concomitant]
  50. SEREVENT [Concomitant]
  51. THEOPHYLLINE [Concomitant]
  52. THEOPHYLLINE [Concomitant]

REACTIONS (2)
  - CHRONIC OBSTRUCTIVE AIRWAYS DISEASE [None]
  - ORAL CANDIDIASIS [None]
